FAERS Safety Report 21702754 (Version 4)
Quarter: 2023Q2

REPORT INFORMATION
  Report Type: Report from Study
  Country: US (occurrence: US)
  Receive Date: 20221209
  Receipt Date: 20230602
  Transmission Date: 20230722
  Serious: Yes (Life-Threatening, Hospitalization, Other)
  Sender: FDA-Public Use
  Company Number: US-TAKEDA-2022TUS094474

PATIENT
  Age: 23 Year
  Sex: Male
  Weight: 50 kg

DRUGS (5)
  1. IDURSULFASE [Suspect]
     Active Substance: IDURSULFASE
     Indication: Mucopolysaccharidosis II
     Dosage: 0.5 MILLIGRAM/KILOGRAM, 1/WEEK
     Route: 042
     Dates: start: 20070131, end: 20230119
  2. XARELTO [Concomitant]
     Active Substance: RIVAROXABAN
     Indication: Jugular vein thrombosis
     Dosage: UNK
     Route: 048
     Dates: start: 20171025
  3. AMITRIPTYLINE HYDROCHLORIDE [Concomitant]
     Active Substance: AMITRIPTYLINE HYDROCHLORIDE
     Indication: Chronic respiratory failure
     Dosage: UNK
     Route: 048
     Dates: start: 20180928
  4. AMITRIPTYLINE HYDROCHLORIDE [Concomitant]
     Active Substance: AMITRIPTYLINE HYDROCHLORIDE
     Indication: Hypoxia
  5. AMITRIPTYLINE HYDROCHLORIDE [Concomitant]
     Active Substance: AMITRIPTYLINE HYDROCHLORIDE
     Indication: Hypercapnia

REACTIONS (3)
  - Cardiac arrest [Recovered/Resolved]
  - Acute respiratory distress syndrome [Recovered/Resolved]
  - Upper respiratory tract infection [Recovered/Resolved]

NARRATIVE: CASE EVENT DATE: 20221127
